FAERS Safety Report 22915546 (Version 3)
Quarter: 2023Q4

REPORT INFORMATION
  Report Type: Report from Study
  Country: US (occurrence: US)
  Receive Date: 20230907
  Receipt Date: 20231226
  Transmission Date: 20240110
  Serious: No
  Sender: FDA-Public Use
  Company Number: US-002147023-NVSC2023US190491

PATIENT
  Sex: Female

DRUGS (5)
  1. COSENTYX [Suspect]
     Active Substance: SECUKINUMAB
     Indication: Hidradenitis
     Dosage: UNK
     Route: 058
     Dates: start: 20230427, end: 20230516
  2. METHOTREXATE [Suspect]
     Active Substance: METHOTREXATE
     Indication: Hidradenitis
     Dosage: UNK
     Route: 058
  3. METHOTREXATE [Suspect]
     Active Substance: METHOTREXATE
     Indication: Psoriasis
  4. METHOTREXATE [Suspect]
     Active Substance: METHOTREXATE
     Indication: Arthropathy
  5. AMITRIPTYLINE [Suspect]
     Active Substance: AMITRIPTYLINE
     Indication: Hidradenitis
     Dosage: UNK
     Route: 058

REACTIONS (11)
  - Skin haemorrhage [Unknown]
  - Nodule [Unknown]
  - Skin abrasion [Unknown]
  - Skin lesion [Unknown]
  - Pain of skin [Unknown]
  - Skin erosion [Unknown]
  - Scab [Unknown]
  - Psoriasis [Unknown]
  - Hidradenitis [Unknown]
  - Treatment failure [Unknown]
  - Product use in unapproved indication [Unknown]
